FAERS Safety Report 25313848 (Version 1)
Quarter: 2025Q2

REPORT INFORMATION
  Report Type: Spontaneous
  Country: US (occurrence: None)
  Receive Date: 20250514
  Receipt Date: 20250514
  Transmission Date: 20250717
  Serious: Yes (Life-Threatening, Disabling)
  Sender: FDA-CTU
  Company Number: None

PATIENT
  Sex: Female

DRUGS (1)
  1. NEXPLANON [Suspect]
     Active Substance: ETONOGESTREL
     Dates: start: 20180630, end: 20211015

REACTIONS (6)
  - Intracranial pressure increased [None]
  - Papilloedema [None]
  - Brain herniation [None]
  - Urinary incontinence [None]
  - Posturing [None]
  - Coma scale abnormal [None]
